FAERS Safety Report 4798418-0 (Version None)
Quarter: 2005Q4

REPORT INFORMATION
  Report Type: 
  Country: None (occurrence: None)
  Receive Date: 20051014
  Receipt Date: 20051006
  Transmission Date: 20060501
  Serious: Yes (Hospitalization)
  Sender: FDA-Public Use
  Company Number: 2005SE05649

PATIENT
  Age: 72 Year
  Sex: Male

DRUGS (3)
  1. BLOPRESS [Suspect]
     Indication: HYPERTENSION
     Route: 048
     Dates: start: 20040330, end: 20050929
  2. ASPIRIN [Concomitant]
     Route: 048
  3. WARFARIN [Concomitant]
     Route: 048

REACTIONS (1)
  - INTERSTITIAL LUNG DISEASE [None]
